FAERS Safety Report 21739317 (Version 1)
Quarter: 2022Q4

REPORT INFORMATION
  Report Type: Spontaneous
  Country: CN (occurrence: None)
  Receive Date: 20221216
  Receipt Date: 20221216
  Transmission Date: 20230113
  Serious: Yes (Hospitalization)
  Sender: FDA-Public Use
  Company Number: CN-ROCHE-3242612

PATIENT
  Age: 45 Year
  Sex: Female
  Weight: 46.5 kg

DRUGS (2)
  1. HERCEPTIN [Suspect]
     Active Substance: TRASTUZUMAB
     Indication: Breast cancer
     Dosage: INJECTION
     Route: 041
     Dates: start: 20221208
  2. PACLITAXEL [Concomitant]
     Active Substance: PACLITAXEL
     Dates: start: 20221125

REACTIONS (1)
  - Hepatic function abnormal [Unknown]

NARRATIVE: CASE EVENT DATE: 20221211
